FAERS Safety Report 23229551 (Version 2)
Quarter: 2024Q1

REPORT INFORMATION
  Report Type: Spontaneous
  Country: DE (occurrence: DE)
  Receive Date: 20231127
  Receipt Date: 20240109
  Transmission Date: 20240410
  Serious: Yes (Hospitalization, Other)
  Sender: FDA-Public Use
  Company Number: DE-TAKEDA-2021TUS081816

PATIENT
  Sex: Female

DRUGS (4)
  1. REMICADE [Suspect]
     Active Substance: INFLIXIMAB
     Indication: Crohn^s disease
     Dosage: UNK
     Route: 042
  2. CORTISONE [Suspect]
     Active Substance: CORTISONE
     Indication: Crohn^s disease
     Route: 065
  3. ENTYVIO [Suspect]
     Active Substance: VEDOLIZUMAB
     Indication: Crohn^s disease
     Dosage: UNK
     Route: 065
  4. ENTYVIO [Suspect]
     Active Substance: VEDOLIZUMAB
     Dosage: UNK
     Route: 058

REACTIONS (17)
  - Macular degeneration [Unknown]
  - Haematochezia [Unknown]
  - Cataract [Unknown]
  - Impaired healing [Unknown]
  - Fatigue [Unknown]
  - Haemorrhoids [Unknown]
  - Anal fissure [Unknown]
  - Abdominal pain upper [Unknown]
  - Fistula [Unknown]
  - Headache [Unknown]
  - Arthritis [Unknown]
  - Myalgia [Unknown]
  - Abscess [Unknown]
  - Polyneuropathy [Unknown]
  - Cystitis [Unknown]
  - Urinary tract infection [Unknown]
  - Cystitis [Unknown]
